FAERS Safety Report 9426821 (Version 1)
Quarter: 2013Q3

REPORT INFORMATION
  Report Type: Spontaneous
  Country: US (occurrence: US)
  Receive Date: 20130730
  Receipt Date: 20130730
  Transmission Date: 20140515
  Serious: Yes (Other)
  Sender: FDA-Public Use
  Company Number: US-SANOFI-AVENTIS-2013SA038894

PATIENT
  Age: 62 Year
  Sex: Male
  Weight: 99 kg

DRUGS (13)
  1. AMBIEN [Suspect]
     Indication: SLEEP DISORDER
     Dosage: STARTED A YEAR AGO
  2. ASPIRIN [Concomitant]
  3. BENICAR [Concomitant]
  4. CHOLESTEROL- AND TRIGLYCERIDE REDUCERS [Concomitant]
  5. OMEGA 3 [Concomitant]
  6. PLAVIX [Concomitant]
  7. MULTIVITAMINS [Concomitant]
  8. LIPITOR [Concomitant]
  9. PRAVASTATIN [Concomitant]
  10. LISINOPRIL [Concomitant]
  11. HYDROCHLOROTHIAZIDE [Concomitant]
  12. FEBUXOSTAT [Concomitant]
  13. PENNSALD [Concomitant]

REACTIONS (3)
  - Drug dependence [Unknown]
  - Intentional overdose [Unknown]
  - Drug ineffective [Unknown]
